FAERS Safety Report 6669673-7 (Version None)
Quarter: 2010Q2

REPORT INFORMATION
  Report Type: 
  Country: None (occurrence: None)
  Receive Date: 20100406
  Receipt Date: 20100324
  Transmission Date: 20101027
  Serious: Yes (Hospitalization, Other)
  Sender: FDA-Public Use
  Company Number: NO-ELI_LILLY_AND_COMPANY-NO201003006452

PATIENT
  Sex: Female

DRUGS (2)
  1. STRATTERA [Suspect]
     Dosage: 36 MG, DAILY (1/D)
     Route: 048
     Dates: start: 20080301, end: 20080401
  2. RITALIN [Concomitant]
     Dosage: 10 MG, UNKNOWN
     Dates: start: 20071201, end: 20080401

REACTIONS (2)
  - CONVULSION [None]
  - HOSPITALISATION [None]
